FAERS Safety Report 18090586 (Version 7)
Quarter: 2022Q1

REPORT INFORMATION
  Report Type: Spontaneous
  Country: PT (occurrence: PT)
  Receive Date: 20200729
  Receipt Date: 20220113
  Transmission Date: 20220423
  Serious: Yes (Hospitalization, Other)
  Sender: FDA-Public Use
  Company Number: PT-009507513-2007PRT010149

PATIENT
  Age: 66 Year
  Sex: Female

DRUGS (6)
  1. PEMBROLIZUMAB [Suspect]
     Active Substance: PEMBROLIZUMAB
     Indication: Lung adenocarcinoma stage IV
     Dosage: 200 MILLIGRAM, EVERY 3 WEEKS/21 DAYS
     Route: 042
     Dates: start: 20190125, end: 20200708
  2. METFORMIN\SITAGLIPTIN [Suspect]
     Active Substance: METFORMIN\SITAGLIPTIN
     Dosage: UNK
     Route: 048
  3. BISOPROLOL [Suspect]
     Active Substance: BISOPROLOL
     Dosage: UNK
  4. SERTRALINE HYDROCHLORIDE [Suspect]
     Active Substance: SERTRALINE HYDROCHLORIDE
     Dosage: UNK
  5. TRAZODONE HYDROCHLORIDE [Suspect]
     Active Substance: TRAZODONE HYDROCHLORIDE
     Dosage: UNK
  6. LORAZEPAM [Suspect]
     Active Substance: LORAZEPAM
     Dosage: UNK

REACTIONS (4)
  - Respiratory failure [Unknown]
  - Meningitis aseptic [Recovered/Resolved]
  - Immune-mediated lung disease [Recovered/Resolved]
  - Interstitial lung disease [Recovered/Resolved]

NARRATIVE: CASE EVENT DATE: 20200101
